FAERS Safety Report 25905326 (Version 1)
Quarter: 2025Q4

REPORT INFORMATION
  Report Type: Spontaneous
  Country: US (occurrence: US)
  Receive Date: 20251010
  Receipt Date: 20251010
  Transmission Date: 20260118
  Serious: No
  Sender: CALLIDITAS THERAPEUTICS AB
  Company Number: US-Calliditas-2025CAL01309

PATIENT
  Age: 27 Year
  Sex: Female

DRUGS (3)
  1. TARPEYO [Suspect]
     Active Substance: BUDESONIDE
     Indication: IgA nephropathy
     Route: 048
     Dates: start: 20250129
  2. LOSARTAN [Concomitant]
     Active Substance: LOSARTAN
  3. JARDIANCE [Concomitant]
     Active Substance: EMPAGLIFLOZIN

REACTIONS (6)
  - Weight increased [Unknown]
  - Amenorrhoea [Not Recovered/Not Resolved]
  - Skin striae [Not Recovered/Not Resolved]
  - Stress [Not Recovered/Not Resolved]
  - Cushingoid [Not Recovered/Not Resolved]
  - Cortisol increased [Not Recovered/Not Resolved]
